FAERS Safety Report 5284564-4 (Version None)
Quarter: 2007Q2

REPORT INFORMATION
  Report Type: 
  Country: None (occurrence: None)
  Receive Date: 20070403
  Receipt Date: 20070326
  Transmission Date: 20071010
  Serious: Yes (Hospitalization)
  Sender: FDA-Public Use
  Company Number: GB-GLAXOSMITHKLINE-B0464582A

PATIENT
  Age: 54 Year
  Sex: Male

DRUGS (3)
  1. RAMIPRIL [Suspect]
     Indication: DRUG USE FOR UNKNOWN INDICATION
     Route: 048
  2. RANITIDINE [Suspect]
     Route: 048
  3. SIMVASTATIN [Suspect]
     Route: 048

REACTIONS (2)
  - HAEMODYNAMIC INSTABILITY [None]
  - OVERDOSE [None]
